FAERS Safety Report 5882315-3 (Version None)
Quarter: 2008Q3

REPORT INFORMATION
  Report Type: 
  Country: None (occurrence: None)
  Receive Date: 20080912
  Receipt Date: 20080729
  Transmission Date: 20090109
  Serious: No
  Sender: FDA-Public Use
  Company Number: US-ABBOTT-08P-163-0466932-00

PATIENT
  Sex: Female
  Weight: 74.456 kg

DRUGS (12)
  1. HUMIRA [Suspect]
     Indication: RHEUMATOID ARTHRITIS
     Route: 050
     Dates: start: 20080401
  2. HUMIRA [Suspect]
     Route: 050
     Dates: start: 20070501, end: 20080401
  3. METHOTREXATE [Suspect]
     Indication: RHEUMATOID ARTHRITIS
  4. PREGABALIN [Concomitant]
     Indication: BACK DISORDER
     Route: 048
     Dates: start: 20070901
  5. METHOTREXATE [Concomitant]
     Dosage: 2.5 TABS 8 QW;SKIP 2 WKS, 4 Q WEEK
     Route: 048
  6. ACETYLSALICYLIC ACID SRT [Concomitant]
     Indication: AMNESIA
     Route: 048
  7. FOLIC ACID [Concomitant]
     Indication: RHEUMATOID ARTHRITIS
     Route: 048
  8. CALCIUM D3 [Concomitant]
     Indication: OSTEOPOROSIS
     Route: 048
  9. HYDROCHLOROTHIAZIDE [Concomitant]
     Indication: HYPERTENSION
     Route: 048
  10. ATORVASTATIN CALCIUM [Concomitant]
     Indication: BLOOD CHOLESTEROL
     Route: 048
  11. PAROXETINE HCL [Concomitant]
     Indication: DEPRESSION
     Route: 048
  12. FAMOTIDINE [Concomitant]
     Indication: GASTROINTESTINAL DISORDER
     Route: 048

REACTIONS (2)
  - HEPATIC CIRRHOSIS [None]
  - INJECTION SITE PAIN [None]
